FAERS Safety Report 15020051 (Version 1)
Quarter: 2018Q2

REPORT INFORMATION
  Report Type: Spontaneous
  Country: BE (occurrence: BE)
  Receive Date: 20180618
  Receipt Date: 20180618
  Transmission Date: 20180711
  Serious: Yes (Death, Hospitalization)
  Sender: FDA-Public Use
  Company Number: BE-TEVA-2018-BE-907302

PATIENT
  Age: 81 Year
  Sex: Female

DRUGS (12)
  1. SERTRALINE 50 MG [Interacting]
     Active Substance: SERTRALINE HYDROCHLORIDE
     Indication: DEPRESSION
     Dosage: 50 MILLIGRAM DAILY; ????CHRONIC TREATMENT DEGRESSIVE DOSE TO BE REPLACED BY MIRTAZAPINE
     Route: 048
  2. ERYTHROFORTE 500 [Suspect]
     Active Substance: ERYTHROMYCIN ETHYLSUCCINATE
     Dosage: 1500 MILLIGRAM DAILY;
     Route: 048
     Dates: start: 20180102, end: 20180109
  3. OMEPRAZOL 40 MG [Interacting]
     Active Substance: OMEPRAZOLE
     Dosage: 40 MILLIGRAM DAILY; CHRONIC TREATMENT
     Route: 048
  4. HYDRALAZINE 25MG TABLET [Concomitant]
     Dosage: 75 MILLIGRAM DAILY; CHRONIC TREATMENT
     Route: 048
  5. MOXONIDINE .4 MG [Concomitant]
     Dosage: CHRONIC TREATMENT
     Route: 048
  6. ASAFLOW 80 MG [Concomitant]
     Dosage: 80 MILLIGRAM DAILY; CHRONIC TREATMENT
     Route: 048
  7. MIRTAZAPINE. [Interacting]
     Active Substance: MIRTAZAPINE
     Indication: INSOMNIA
  8. LASIX [Suspect]
     Active Substance: FUROSEMIDE
     Dosage: 80 MILLIGRAM DAILY; CHRONIC TREATMENT
     Route: 048
  9. TENORMIN 25 MG [Concomitant]
     Dosage: 32.5 MILLIGRAM DAILY; CHRONIC TREATMENT?(0.5CC IN THE MORNING = 1CC IN THE EVENING)
     Route: 048
  10. MIRTAZAPINE. [Suspect]
     Active Substance: MIRTAZAPINE
     Indication: DEPRESSION
     Dosage: 15 MILLIGRAM DAILY; I DO NOT KNOW IF THE TREATMENT WAS ALREADY STARTED WHEN THE EFFECTS APPEARED II
     Route: 048
  11. CORDARONE [Suspect]
     Active Substance: AMIODARONE HYDROCHLORIDE
     Dosage: 100 MILLIGRAM DAILY; CHRONIC TREATMENT
     Route: 048
  12. ALLOPURINOL 100MG [Concomitant]
     Active Substance: ALLOPURINOL
     Dosage: 100 MILLIGRAM DAILY; CHRONIC TREATMENT
     Route: 048

REACTIONS (3)
  - Death [Fatal]
  - Electrocardiogram QT prolonged [Fatal]
  - Drug interaction [Fatal]
